FAERS Safety Report 10801703 (Version 3)
Quarter: 2015Q2

REPORT INFORMATION
  Report Type: Spontaneous
  Country: JP (occurrence: JP)
  Receive Date: 20150217
  Receipt Date: 20150615
  Transmission Date: 20150821
  Serious: Yes (Death, Hospitalization)
  Sender: FDA-Public Use
  Company Number: JP-ROCHE-1537889

PATIENT
  Age: 66 Year
  Sex: Male
  Weight: 45 kg

DRUGS (12)
  1. EQUA [Concomitant]
     Active Substance: VILDAGLIPTIN
     Indication: TYPE 2 DIABETES MELLITUS
     Route: 048
  2. LOXONIN [Concomitant]
     Active Substance: LOXOPROFEN SODIUM
     Indication: RHEUMATOID VASCULITIS
     Dosage: DOSAGE IS UNCERTAIN.
     Route: 048
  3. ACTEMRA [Suspect]
     Active Substance: TOCILIZUMAB
     Indication: RHEUMATOID VASCULITIS
     Dosage: DOSAGE IS UNCERTAIN.
     Route: 041
     Dates: start: 20130513, end: 20140728
  4. ACTEMRA [Suspect]
     Active Substance: TOCILIZUMAB
     Indication: RHEUMATOID VASCULITIS
  5. ACTEMRA [Suspect]
     Active Substance: TOCILIZUMAB
     Indication: RHEUMATOID VASCULITIS
     Route: 058
     Dates: start: 20140728, end: 20141231
  6. RHEUMATREX [Concomitant]
     Active Substance: METHOTREXATE SODIUM
     Indication: RHEUMATOID VASCULITIS
     Route: 065
     Dates: start: 20130607, end: 20141201
  7. AZULFIDINE EN-TABS [Concomitant]
     Active Substance: SULFASALAZINE
     Indication: RHEUMATOID VASCULITIS
     Route: 048
     Dates: start: 201203, end: 20141201
  8. PREDNISOLONE. [Concomitant]
     Active Substance: PREDNISOLONE
     Indication: RHEUMATOID VASCULITIS
     Route: 065
     Dates: start: 201203
  9. HOKUNALIN [Concomitant]
     Active Substance: TULOBUTEROL
     Indication: EMPHYSEMA
     Route: 062
  10. GASTER [Concomitant]
     Active Substance: FAMOTIDINE
     Indication: PROPHYLAXIS
     Route: 048
  11. LOXONIN [Concomitant]
     Active Substance: LOXOPROFEN SODIUM
     Indication: RHEUMATOID VASCULITIS
     Route: 048
  12. METHYCOBAL [Concomitant]
     Active Substance: METHYLCOBALAMIN
     Indication: RHEUMATOID VASCULITIS
     Route: 048

REACTIONS (3)
  - White blood cell count decreased [Fatal]
  - Acute respiratory distress syndrome [Fatal]
  - Pneumonia [Fatal]

NARRATIVE: CASE EVENT DATE: 20150115
